FAERS Safety Report 23103594 (Version 3)
Quarter: 2023Q4

REPORT INFORMATION
  Report Type: Spontaneous
  Country: US (occurrence: US)
  Receive Date: 20231025
  Receipt Date: 20231129
  Transmission Date: 20240110
  Serious: No
  Sender: FDA-Public Use
  Company Number: US-VERTEX PHARMACEUTICALS-2023-015846

PATIENT
  Age: 6 Year
  Sex: Male
  Weight: 28 kg

DRUGS (7)
  1. TRIKAFTA [Suspect]
     Active Substance: ELEXACAFTOR\IVACAFTOR\TEZACAFTOR
     Indication: Cystic fibrosis
     Dosage: 2 ORANGE TABS IN AM, 1 BLUE TAB IN PM
     Route: 048
     Dates: start: 20220111
  2. ALBUTEROL [Concomitant]
     Active Substance: ALBUTEROL
     Dosage: 2-3 PUFFS TWICE DAILY, WITH INCREASED VEST 3-4 PUFFS DAILY
  3. ALBUTEROL [Concomitant]
     Active Substance: ALBUTEROL
     Dosage: 2.5 MG / 3 ML (0.083%) TWICE DAIL); 3-4 TIMES DAILY FOR SICKNESS, EVERY 3-4 HOURS AS NEEDED FOR COUG
  4. ZYRTEC [Concomitant]
     Active Substance: CETIRIZINE HYDROCHLORIDE
     Dosage: 1 TAB DAILY
     Route: 048
  5. PULMOZYME [Concomitant]
     Active Substance: DORNASE ALFA
     Dosage: 2.5 MG/2.5 ML; 2.5 MG DAILY
  6. FLOVENT HFA [Concomitant]
     Active Substance: FLUTICASONE PROPIONATE
     Dosage: BID
  7. LIDOCAINE\PRILOCAINE HYDROCHLORIDE [Concomitant]
     Active Substance: LIDOCAINE\PRILOCAINE HYDROCHLORIDE
     Dosage: 2.5% - 2.5% CREAM; TO BE USED AS DIRECTED
     Route: 062

REACTIONS (5)
  - Staphylococcus test positive [Unknown]
  - Haemophilus test positive [Unknown]
  - Blood alkaline phosphatase increased [Unknown]
  - Pancreatic failure [Not Recovered/Not Resolved]
  - Nasopharyngitis [Not Recovered/Not Resolved]

NARRATIVE: CASE EVENT DATE: 20220419
